FAERS Safety Report 12010679 (Version 4)
Quarter: 2016Q1

REPORT INFORMATION
  Report Type: Spontaneous
  Country: JP (occurrence: JP)
  Receive Date: 20160205
  Receipt Date: 20160325
  Transmission Date: 20160526
  Serious: Yes (Hospitalization)
  Sender: FDA-Public Use
  Company Number: JP-PFIZER INC-2016063597

PATIENT
  Age: 54 Year
  Sex: Male

DRUGS (4)
  1. LOXONIN [Concomitant]
     Active Substance: LOXOPROFEN SODIUM
     Dosage: 3 DF, UNK
     Dates: start: 20151111, end: 20151117
  2. LYRICA [Suspect]
     Active Substance: PREGABALIN
     Indication: HYPOAESTHESIA
     Dosage: 25 MG, 1X/DAY
     Route: 048
     Dates: start: 20151111, end: 20151122
  3. MYONAL [Suspect]
     Active Substance: EPERISONE HYDROCHLORIDE
     Dosage: 3 DF, UNK
     Dates: start: 20151111, end: 20151117
  4. SELBEX [Concomitant]
     Active Substance: TEPRENONE
     Dosage: 3 DF, UNK
     Dates: start: 20151111, end: 20151117

REACTIONS (1)
  - Anaphylactic shock [Recovered/Resolved]

NARRATIVE: CASE EVENT DATE: 20151120
